FAERS Safety Report 14337732 (Version 1)
Quarter: 2017Q4

REPORT INFORMATION
  Report Type: Spontaneous
  Country: US (occurrence: US)
  Receive Date: 20171229
  Receipt Date: 20171229
  Transmission Date: 20180321
  Serious: No
  Sender: FDA-Public Use
  Company Number: PHEH2017US040726

PATIENT
  Sex: Female
  Weight: 87.54 kg

DRUGS (1)
  1. AMIODARONE SANDOZ [Suspect]
     Active Substance: AMIODARONE
     Indication: ATRIAL FIBRILLATION
     Dosage: 2 TABLETS TWICW A DAY FOR TWO WEEKS AND 1 TABLET TWICE DAILY FOR TWO WEEKS
     Route: 048
     Dates: start: 201712

REACTIONS (5)
  - Tremor [Unknown]
  - Dysphonia [Unknown]
  - Nervousness [Unknown]
  - Drug ineffective [Not Recovered/Not Resolved]
  - Dry mouth [Unknown]
